FAERS Safety Report 7037219-X (Version None)
Quarter: 2010Q4

REPORT INFORMATION
  Report Type: 
  Country: None (occurrence: None)
  Receive Date: 20101011
  Receipt Date: 20100930
  Transmission Date: 20110411
  Serious: Yes (Hospitalization, Disabling)
  Sender: FDA-Public Use
  Company Number: NL-ROCHE-726334

PATIENT
  Sex: Female
  Weight: 75 kg

DRUGS (9)
  1. BEVACIZUMAB [Suspect]
     Indication: GLIOBLASTOMA
     Dosage: FORM: INFUSION; LAST DOSE PRIOR TO SAE: 02 SEPTEMBER 2010
     Route: 042
     Dates: start: 20100819
  2. LOMUSTINE [Suspect]
     Indication: GLIOBLASTOMA
     Dosage: TDD: 5X40 MG; LAST DOSE PRIOR TO SAE: 19 AUGUST 2010
     Route: 048
     Dates: start: 20100819
  3. VALPROIC ACID [Concomitant]
     Dosage: DDRUG: VALPROATE ACID; LAST DOSE PRIOR TO SAE: 07 SEPTEMBER 2010
     Route: 048
     Dates: start: 20100518
  4. LEVETIRACETAM [Concomitant]
     Dosage: LAST DOSE PRIOR TO SAE: 07 SEPTEMBER 2010
     Route: 048
     Dates: start: 20100518
  5. METFORMIN [Concomitant]
     Indication: DIABETES MELLITUS
     Dosage: LAST DOSE PRIOR TO SAE: 07 SEPTEMBER 2010
     Route: 048
     Dates: start: 20100518
  6. DEXAMETHASONE [Concomitant]
     Indication: OEDEMA
     Dosage: LAST DOSE PRIOR TO SAE: 07 SEPTEMBER 2010
     Route: 048
     Dates: start: 20100518
  7. PANTOPRAZOLE SODIUM [Concomitant]
     Indication: PROPHYLAXIS
     Dosage: LAST DOSE PRIOR TO SAE: 07 SEPTEMBER 2010
     Route: 048
     Dates: start: 20100518
  8. ADALAT [Concomitant]
     Indication: HYPERTENSION
     Dosage: LAST DOSE PRIOR TO SAE: 07 SEPTEMBER 2010
     Route: 048
     Dates: start: 20100805
  9. HYDROCHLOROTHIAZIDE [Concomitant]
     Indication: HYPERTENSION
     Dosage: LAST DOSE PRIOR TO SAE: 07 SEP 2010
     Route: 048
     Dates: start: 20100902

REACTIONS (1)
  - CONVULSION [None]
